FAERS Safety Report 8313345-X (Version None)
Quarter: 2012Q2

REPORT INFORMATION
  Report Type: 
  Country: None (occurrence: None)
  Receive Date: 20120426
  Receipt Date: 20120414
  Transmission Date: 20120825
  Serious: Yes (Hospitalization, Other)
  Sender: FDA-Public Use
  Company Number: PHEH2012US005655

PATIENT
  Sex: Female

DRUGS (2)
  1. TASIGNA [Suspect]
     Indication: CHRONIC MYELOID LEUKAEMIA
     Dosage: 300 MG, BID
     Route: 048
     Dates: start: 20110901, end: 20120301
  2. PROTONIX [Interacting]

REACTIONS (4)
  - PANCREATITIS [None]
  - ULCER HAEMORRHAGE [None]
  - VOMITING [None]
  - DRUG INTERACTION [None]
